FAERS Safety Report 4462114-X (Version None)
Quarter: 2004Q3

REPORT INFORMATION
  Report Type: 
  Country: None (occurrence: None)
  Receive Date: 20040924
  Receipt Date: 20040924
  Transmission Date: 20050211
  Serious: Yes (Other)
  Sender: FDA-Public Use
  Company Number: None

PATIENT
  Age: 77 Year
  Sex: Female
  Weight: 58 kg

DRUGS (1)
  1. MIRTAZEPINE 15MG MFR UNK [Suspect]
     Indication: DEPRESSION
     Dosage: 15 MG DAILY

REACTIONS (1)
  - HEADACHE [None]
